FAERS Safety Report 5947844-2 (Version None)
Quarter: 2008Q4

REPORT INFORMATION
  Report Type: 
  Country: None (occurrence: None)
  Receive Date: 20081107
  Receipt Date: 20081024
  Transmission Date: 20090506
  Serious: Yes (Other)
  Sender: FDA-Public Use
  Company Number: 2008SP021890

PATIENT
  Age: 9 Year
  Sex: Female
  Weight: 30 kg

DRUGS (3)
  1. CLARITINE (LORATADINE) (LORATADINE) (10 MG) [Suspect]
     Indication: NASOPHARYNGITIS
     Dosage: 10 MG; PO
     Route: 048
     Dates: start: 20080910, end: 20080912
  2. CLARITINE (LORATADINE) (LORATADINE) (10 MG) [Suspect]
     Indication: OFF LABEL USE
     Dosage: 10 MG; PO
     Route: 048
     Dates: start: 20080910, end: 20080912
  3. ACTIFED [Suspect]
     Indication: NASOPHARYNGITIS
     Dosage: 6 DF; BID; PO
     Route: 048
     Dates: start: 20080910, end: 20080912

REACTIONS (3)
  - BALANCE DISORDER [None]
  - DIZZINESS [None]
  - VISUAL IMPAIRMENT [None]
